FAERS Safety Report 16897015 (Version 4)
Quarter: 2020Q3

REPORT INFORMATION
  Report Type: Report from Study
  Country: IT (occurrence: IT)
  Receive Date: 20191009
  Receipt Date: 20200723
  Transmission Date: 20201102
  Serious: Yes (Hospitalization)
  Sender: FDA-Public Use
  Company Number: IT-ROCHE-2429873

PATIENT
  Age: 66 Year
  Sex: Male

DRUGS (56)
  1. ALLOPURINOLO [Concomitant]
     Active Substance: ALLOPURINOL
     Dates: start: 2020
  2. CLORFENAMINA [Concomitant]
     Dates: start: 20170111, end: 20170111
  3. CLORFENAMINA [Concomitant]
     Dates: start: 20161214, end: 20161214
  4. CLORFENAMINA [Concomitant]
     Dates: start: 20160824, end: 20160824
  5. METILPREDNISOLONE [Concomitant]
     Active Substance: METHYLPREDNISOLONE
     Dates: start: 20161020, end: 20161020
  6. NADIFLOXACIN [Concomitant]
     Active Substance: NADIFLOXACIN
     Indication: NASAL CYST
     Dates: start: 20181127, end: 20181210
  7. PARACETAMOL [Concomitant]
     Active Substance: ACETAMINOPHEN
     Indication: PREMEDICATION
     Dates: start: 20160825, end: 20160825
  8. PARACETAMOL [Concomitant]
     Active Substance: ACETAMINOPHEN
     Dates: start: 20161116, end: 20161116
  9. OBINUTUZUMAB. [Suspect]
     Active Substance: OBINUTUZUMAB
     Indication: CHRONIC LYMPHOCYTIC LEUKAEMIA
     Dosage: OVER A TOTAL OF 6 TREATMENT CYCLES?INFUSION START WAS 11:30 AND STOP TIME WAS 15:55.
     Route: 042
     Dates: start: 20160824, end: 20160824
  10. CALCIUM CARBONATE. [Concomitant]
     Active Substance: CALCIUM CARBONATE
     Indication: HYPOCALCAEMIA
     Dates: start: 20190928
  11. CLORFENAMINA [Concomitant]
     Indication: PREMEDICATION
     Dosage: ONE TIME ONLY
     Dates: start: 20160831, end: 20160831
  12. BISOPROLOLO [Concomitant]
     Active Substance: BISOPROLOL FUMARATE
     Dates: start: 20161019
  13. TITANIUM DIOXIDE. [Concomitant]
     Active Substance: TITANIUM DIOXIDE
     Dosage: AS NEEDED
     Dates: start: 20180530
  14. METILPREDNISOLONE [Concomitant]
     Active Substance: METHYLPREDNISOLONE
     Dates: start: 20161214, end: 20161214
  15. PARACETAMOL [Concomitant]
     Active Substance: ACETAMINOPHEN
     Dates: start: 20160831, end: 20160831
  16. PARACETAMOL [Concomitant]
     Active Substance: ACETAMINOPHEN
     Dates: start: 20161214, end: 20161214
  17. PARACETAMOL [Concomitant]
     Active Substance: ACETAMINOPHEN
     Dosage: AS NEEDED
     Dates: start: 20190928
  18. ISONIAZIDE [Concomitant]
     Active Substance: ISONIAZID
     Indication: HYPERTENSION
     Dates: start: 20160825
  19. ALLOPURINOLO [Concomitant]
     Active Substance: ALLOPURINOL
     Indication: HYPERURICAEMIA
     Dates: start: 20160727, end: 20180214
  20. CLORFENAMINA [Concomitant]
     Dates: start: 20161116, end: 20161116
  21. OVIXAN [Concomitant]
     Dates: start: 20180530, end: 20190620
  22. METFORMINA [Concomitant]
     Active Substance: METFORMIN HYDROCHLORIDE
     Indication: DIABETES MELLITUS
     Dates: start: 2003, end: 20190110
  23. KETOROLAC [Concomitant]
     Active Substance: KETOROLAC TROMETHAMINE
     Dates: start: 20160824, end: 20160824
  24. SOTALOLO [Concomitant]
     Dates: start: 2011, end: 20160922
  25. IVERMECTINE [Concomitant]
     Active Substance: IVERMECTIN
     Dates: start: 201909
  26. FUROSEMIDE. [Concomitant]
     Active Substance: FUROSEMIDE
     Indication: OEDEMA PERIPHERAL
     Dates: start: 201709
  27. CLORFENAMINA [Concomitant]
     Dates: start: 20160907, end: 20160907
  28. PARACETAMOL [Concomitant]
     Active Substance: ACETAMINOPHEN
     Indication: PAIN
     Dates: start: 20160907, end: 20160907
  29. PARACETAMOL [Concomitant]
     Active Substance: ACETAMINOPHEN
     Dates: start: 20160824, end: 20160824
  30. PARACETAMOL [Concomitant]
     Active Substance: ACETAMINOPHEN
     Dates: start: 20161020, end: 20161020
  31. OVIXAN [Concomitant]
     Dates: start: 20190620
  32. CLORFENAMINA [Concomitant]
     Indication: PREMEDICATION
     Dates: start: 20160825, end: 20160825
  33. CALCITRIOL. [Concomitant]
     Active Substance: CALCITRIOL
     Indication: HYPOCALCAEMIA
     Dates: start: 20190928
  34. ATORVASTATIN [Concomitant]
     Active Substance: ATORVASTATIN
     Indication: DYSLIPIDAEMIA
     Dates: start: 1990
  35. CLORFENAMINA [Concomitant]
     Dates: start: 20160921, end: 20160921
  36. CLORFENAMINA [Concomitant]
     Dates: start: 20161020, end: 20161020
  37. AMOXICILLIN;CLAVULANIC ACID [Concomitant]
     Active Substance: AMOXICILLIN\CLAVULANIC ACID
     Indication: BRONCHITIS
     Dates: start: 20170908, end: 20170913
  38. METILPREDNISOLONE [Concomitant]
     Active Substance: METHYLPREDNISOLONE
     Dates: start: 20160921, end: 20160921
  39. METILPREDNISOLONE [Concomitant]
     Active Substance: METHYLPREDNISOLONE
     Dates: start: 20170111, end: 20170111
  40. ACALABRUTINIB. [Suspect]
     Active Substance: ACALABRUTINIB
     Indication: CHRONIC LYMPHOCYTIC LEUKAEMIA
     Route: 048
     Dates: start: 20160727
  41. ALLOPURINOLO [Concomitant]
     Active Substance: ALLOPURINOL
     Dates: start: 20181115
  42. METILPREDNISOLONE [Concomitant]
     Active Substance: METHYLPREDNISOLONE
     Dates: start: 20160825, end: 20160825
  43. NADIFLOXACIN [Concomitant]
     Active Substance: NADIFLOXACIN
     Dates: start: 20190218
  44. OBINUTUZUMAB. [Suspect]
     Active Substance: OBINUTUZUMAB
     Dosage: INFUSION START WAS 12:00 AND STOP TIME WAS 15:30.
     Route: 042
     Dates: start: 20170111, end: 20170111
  45. METILPREDNISOLONE [Concomitant]
     Active Substance: METHYLPREDNISOLONE
     Dates: start: 20160824, end: 20160824
  46. PARACETAMOL [Concomitant]
     Active Substance: ACETAMINOPHEN
     Dates: start: 20160921, end: 20160921
  47. GENTAMICINA [Concomitant]
     Active Substance: GENTAMICIN
     Dates: start: 20170908, end: 20170911
  48. CLORFENAMINA [Concomitant]
     Dates: start: 20160825, end: 20160825
  49. AMOXICILLIN;CLAVULANIC ACID [Concomitant]
     Active Substance: AMOXICILLIN\CLAVULANIC ACID
     Dates: start: 20190114, end: 20190121
  50. METILPREDNISOLONE [Concomitant]
     Active Substance: METHYLPREDNISOLONE
     Indication: PREMEDICATION
     Dates: start: 20160907, end: 20160907
  51. METILPREDNISOLONE [Concomitant]
     Active Substance: METHYLPREDNISOLONE
     Dates: start: 20161116, end: 20161116
  52. METILPREDNISOLONE [Concomitant]
     Active Substance: METHYLPREDNISOLONE
     Dates: start: 20160831, end: 20160831
  53. EMPAGLIFLOZIN [Concomitant]
     Active Substance: EMPAGLIFLOZIN
     Indication: DIABETES MELLITUS
     Dates: start: 20190111
  54. PARACETAMOL [Concomitant]
     Active Substance: ACETAMINOPHEN
     Dates: start: 20170111, end: 20170111
  55. METFORMINA CLORHIDRATO [Concomitant]
     Indication: DIABETES MELLITUS
     Dates: start: 20190101
  56. ACETYLSALICYLIC ACID [Concomitant]
     Active Substance: ASPIRIN
     Indication: ACUTE MYOCARDIAL INFARCTION
     Dates: start: 2003

REACTIONS (1)
  - Thyroid cancer [Recovered/Resolved]

NARRATIVE: CASE EVENT DATE: 20190822
